FAERS Safety Report 15740332 (Version 1)
Quarter: 2018Q4

REPORT INFORMATION
  Report Type: Report from Study
  Country: BR (occurrence: BR)
  Receive Date: 20181219
  Receipt Date: 20181219
  Transmission Date: 20190205
  Serious: Yes (Other)
  Sender: FDA-Public Use
  Company Number: BR-GLAXOSMITHKLINE-BR2018226758

PATIENT
  Sex: Female

DRUGS (4)
  1. PREDNISONE. [Suspect]
     Active Substance: PREDNISONE
     Indication: CHIKUNGUNYA VIRUS INFECTION
     Dosage: UNK (7 DAYS 3 TABLETS, THEN 7 DAYS 2 INDICATION: TAKE TO TREAT)
     Route: 065
     Dates: start: 20180521
  2. SYSTANE (HYPROMELLOSE 2910 (4000 MPA.S)) [Suspect]
     Active Substance: HYPROMELLOSE 2910 (4000 MPA.S)
     Indication: CATARACT
     Dosage: 1 GTT, TID
     Route: 065
  3. IODINE. [Suspect]
     Active Substance: IODINE
     Indication: PRODUCT USED FOR UNKNOWN INDICATION
     Dosage: UNK
     Route: 065
  4. DICLOFENAC POTASSIUM. [Suspect]
     Active Substance: DICLOFENAC POTASSIUM
     Indication: PRODUCT USED FOR UNKNOWN INDICATION
     Dosage: UNK
     Route: 065

REACTIONS (14)
  - Dysstasia [Unknown]
  - Visual impairment [Unknown]
  - Diabetes mellitus [Unknown]
  - Blindness [Recovering/Resolving]
  - Hypertension [Unknown]
  - Weight decreased [Unknown]
  - Malaise [Unknown]
  - Liver disorder [Unknown]
  - Arthralgia [Unknown]
  - Gait disturbance [Unknown]
  - Dysgeusia [Unknown]
  - Chikungunya virus infection [Unknown]
  - Chills [Unknown]
  - Drug hypersensitivity [Unknown]
